FAERS Safety Report 9803409 (Version 1)
Quarter: 2014Q1

REPORT INFORMATION
  Report Type: Spontaneous
  Country: GB (occurrence: None)
  Receive Date: 20140103
  Receipt Date: 20140103
  Transmission Date: 20141002
  Serious: Yes (Hospitalization)
  Sender: FDA-Public Use
  Company Number: GB-DEXPHARM-20131181

PATIENT
  Age: 60 Year
  Sex: Female

DRUGS (1)
  1. TAZOCIN [Suspect]
     Dosage: (NOT OTHERWISE SPECIFIED)
     Route: 042
     Dates: start: 20111211, end: 20111213

REACTIONS (1)
  - Clostridium difficile infection [None]
